FAERS Safety Report 24776889 (Version 1)
Quarter: 2024Q4

REPORT INFORMATION
  Report Type: Spontaneous
  Country: JP (occurrence: JP)
  Receive Date: 20241226
  Receipt Date: 20241226
  Transmission Date: 20250115
  Serious: Yes (Other)
  Sender: REGENERON
  Company Number: JP-BAYER-2024A153493

PATIENT

DRUGS (1)
  1. EYLEA HD [Suspect]
     Active Substance: AFLIBERCEPT
     Indication: Product used for unknown indication
     Dosage: UNK; SOLUTION FOR INJECTION; STRENGTH: 114.3 MG/ML

REACTIONS (1)
  - Ocular hypertension [Recovered/Resolved]
